APPROVED DRUG PRODUCT: ILOSONE SULFA
Active Ingredient: ERYTHROMYCIN ESTOLATE; SULFISOXAZOLE ACETYL
Strength: EQ 125MG BASE/5ML;EQ 600MG BASE/5ML
Dosage Form/Route: SUSPENSION;ORAL
Application: N050599 | Product #001
Applicant: ELI LILLY AND CO
Approved: Sep 29, 1989 | RLD: No | RS: No | Type: DISCN